FAERS Safety Report 5979211-X (Version None)
Quarter: 2008Q4

REPORT INFORMATION
  Report Type: 
  Country: None (occurrence: None)
  Receive Date: 20081204
  Receipt Date: 20080520
  Transmission Date: 20090506
  Serious: No
  Sender: FDA-Public Use
  Company Number: US-ABBOTT-08P-163-0455162-00

PATIENT
  Age: 65 Year
  Sex: Female

DRUGS (2)
  1. TRICOR [Suspect]
     Indication: BLOOD TRIGLYCERIDES INCREASED
  2. TRICOR [Suspect]

REACTIONS (5)
  - DEPRESSION [None]
  - HEADACHE [None]
  - MALAISE [None]
  - MYALGIA [None]
  - PAIN [None]
